FAERS Safety Report 7510404-6 (Version None)
Quarter: 2011Q2

REPORT INFORMATION
  Report Type: 
  Country: None (occurrence: None)
  Receive Date: 20110527
  Receipt Date: 20110524
  Transmission Date: 20111010
  Serious: Yes (Other)
  Sender: FDA-Public Use
  Company Number: GB-MERCK-1105GBR00089

PATIENT
  Age: 35 Year
  Sex: Female

DRUGS (5)
  1. EMEND [Suspect]
     Indication: NAUSEA
     Route: 048
     Dates: start: 20110506, end: 20110506
  2. EPIRUBICIN HYDROCHLORIDE [Concomitant]
     Indication: BREAST CANCER
     Route: 041
     Dates: start: 20110506, end: 20110506
  3. CYCLOPHOSPHAMIDE [Concomitant]
     Indication: BREAST CANCER
     Route: 041
     Dates: start: 20110506, end: 20110506
  4. FLUOROURACIL [Concomitant]
     Route: 041
     Dates: start: 20110506, end: 20110506
  5. EMEND [Suspect]
     Indication: VOMITING
     Route: 048
     Dates: start: 20110506, end: 20110506

REACTIONS (2)
  - ARRHYTHMIA [None]
  - PALPITATIONS [None]
